FAERS Safety Report 5830039-0 (Version None)
Quarter: 2008Q3

REPORT INFORMATION
  Report Type: 
  Country: None (occurrence: None)
  Receive Date: 20080801
  Receipt Date: 20080722
  Transmission Date: 20090109
  Serious: Yes (Death, Other)
  Sender: FDA-Public Use
  Company Number: US-BAYER-200817443NA

PATIENT
  Age: 68 Year
  Sex: Male

DRUGS (9)
  1. MAGNEVIST [Suspect]
     Indication: NUCLEAR MAGNETIC RESONANCE IMAGING
     Route: 042
     Dates: start: 20030709, end: 20030709
  2. OMNISCAN [Suspect]
     Indication: NUCLEAR MAGNETIC RESONANCE IMAGING
     Route: 042
     Dates: start: 20040204, end: 20040204
  3. OMNISCAN [Suspect]
     Route: 042
     Dates: start: 20040618, end: 20040618
  4. OMNISCAN [Suspect]
     Route: 042
     Dates: start: 20040805, end: 20040805
  5. OMNISCAN [Suspect]
     Route: 042
     Dates: start: 20040910, end: 20040910
  6. OMNISCAN [Suspect]
     Route: 042
     Dates: start: 20050120, end: 20050120
  7. OPTIMARK [Suspect]
     Route: 042
  8. MULTIHANCE [Suspect]
     Route: 042
  9. PROHANCE [Suspect]
     Route: 042

REACTIONS (5)
  - EMOTIONAL DISTRESS [None]
  - GENERAL PHYSICAL HEALTH DETERIORATION [None]
  - INJURY [None]
  - NEPHROGENIC SYSTEMIC FIBROSIS [None]
  - PAIN [None]
